FAERS Safety Report 17883196 (Version 2)
Quarter: 2020Q3

REPORT INFORMATION
  Report Type: Spontaneous
  Country: AU (occurrence: AU)
  Receive Date: 20200611
  Receipt Date: 20200706
  Transmission Date: 20201103
  Serious: Yes (Hospitalization, Other)
  Sender: FDA-Public Use
  Company Number: AU-GENERIC HEALTH PTY. LTD.-2020-02737

PATIENT
  Age: 72 Year
  Sex: Female

DRUGS (14)
  1. MORPHINE [Suspect]
     Active Substance: MORPHINE
     Dosage: UNK
     Route: 058
     Dates: end: 2019
  2. CLONIDINE. [Suspect]
     Active Substance: CLONIDINE
     Dosage: RESTARTED 100 MICROGRAM, QD (AT NIGHT)
     Route: 058
  3. HALOPERIDOL. [Suspect]
     Active Substance: HALOPERIDOL
     Indication: HALLUCINATIONS, MIXED
     Dosage: 1 MILLIGRAM, BID
     Route: 058
  4. CLONIDINE. [Suspect]
     Active Substance: CLONIDINE
     Dosage: 100 MICROGRAM, QD (AT NIGHT)
     Route: 058
  5. MORPHINE [Suspect]
     Active Substance: MORPHINE
     Indication: CANCER PAIN
     Dosage: UNK
     Route: 048
     Dates: start: 2019, end: 2019
  6. CLONIDINE. [Suspect]
     Active Substance: CLONIDINE
     Dosage: 150 MICROGRAM, QD (AT NIGHT)
     Route: 048
  7. OLANZAPINE. [Suspect]
     Active Substance: OLANZAPINE
     Indication: HALLUCINATION, VISUAL
  8. LEVOMEPROMAZINE [Suspect]
     Active Substance: LEVOMEPROMAZINE
     Indication: PSYCHOTHERAPY
     Dosage: 12.5 MILLIGRAM, QD (AT NIGHT)
     Route: 058
  9. HALOPERIDOL. [Suspect]
     Active Substance: HALOPERIDOL
     Indication: HALLUCINATION, TACTILE
  10. CLONIDINE. [Suspect]
     Active Substance: CLONIDINE
     Indication: HALLUCINATIONS, MIXED
     Dosage: 100 MICROGRAM, QD (AT NIGHT)
     Route: 058
  11. OLANZAPINE. [Suspect]
     Active Substance: OLANZAPINE
     Indication: HALLUCINATION, TACTILE
     Dosage: 5 MILLIGRAM, QD (AT NIGHT)
     Route: 065
  12. DIAZEPAM. [Suspect]
     Active Substance: DIAZEPAM
     Indication: ANXIETY
     Dosage: UNK UNK, PRN
     Route: 065
  13. HYDROMORPHONE [Concomitant]
     Active Substance: HYDROMORPHONE
     Indication: CANCER PAIN
     Dosage: UNK
     Route: 065
     Dates: start: 2019
  14. HYOSCINE BUTYLBROMIDE [Suspect]
     Active Substance: BUTYLSCOPOLAMINE BROMIDE
     Indication: ABDOMINAL PAIN
     Dosage: UNK
     Route: 065
     Dates: start: 2019

REACTIONS (8)
  - Neurotoxicity [Recovered/Resolved]
  - Therapeutic product effect incomplete [Unknown]
  - Emotional distress [Recovered/Resolved]
  - Sedation [Unknown]
  - Hallucination, tactile [Recovered/Resolved]
  - Off label use [Unknown]
  - Hallucinations, mixed [Recovered/Resolved]
  - Somnolence [Unknown]

NARRATIVE: CASE EVENT DATE: 2019
